FAERS Safety Report 15253473 (Version 4)
Quarter: 2018Q3

REPORT INFORMATION
  Report Type: Report from Study
  Country: None (occurrence: DE)
  Receive Date: 20180808
  Receipt Date: 20180910
  Transmission Date: 20181010
  Serious: Yes (Death, Hospitalization)
  Sender: FDA-Public Use
  Company Number: DE-ABBVIE-18S-062-2439911-00

PATIENT
  Age: 81 Year
  Sex: Male
  Weight: 58.2 kg

DRUGS (11)
  1. DUODOPA [Suspect]
     Active Substance: CARBIDOPA\LEVODOPA
     Indication: PARKINSON^S DISEASE
     Dosage: MD 10 ML; CRD 4.6 ML/H; ED 1 ML
     Route: 050
     Dates: start: 20130227
  2. TARDYFERON [Concomitant]
     Active Substance: FERROUS SULFATE
     Indication: PRODUCT USED FOR UNKNOWN INDICATION
     Dosage: 0?1?0
     Route: 048
  3. DUODOPA [Suspect]
     Active Substance: CARBIDOPA\LEVODOPA
     Route: 050
  4. DUODOPA [Suspect]
     Active Substance: CARBIDOPA\LEVODOPA
     Dosage: MORNING DOSE WAS NOT ADMINISTERED
     Route: 050
     Dates: start: 20180801, end: 20180801
  5. PANTOPRAZOL [Concomitant]
     Active Substance: PANTOPRAZOLE SODIUM
     Indication: PRODUCT USED FOR UNKNOWN INDICATION
     Dosage: 1?0?0
     Route: 048
  6. RAMIPRIL. [Concomitant]
     Active Substance: RAMIPRIL
     Indication: PRODUCT USED FOR UNKNOWN INDICATION
  7. VITAMIN B DUO [Concomitant]
     Indication: PRODUCT USED FOR UNKNOWN INDICATION
     Dosage: 100/100 MG?1?0?0
     Route: 048
  8. MADOPAR DEPOT [Concomitant]
     Active Substance: BENSERAZIDE HYDROCHLORIDE\LEVODOPA
     Indication: PRODUCT USED FOR UNKNOWN INDICATION
  9. DONEPEZIL. [Concomitant]
     Active Substance: DONEPEZIL
     Indication: PRODUCT USED FOR UNKNOWN INDICATION
     Dosage: 0?0?1
     Route: 048
  10. LEVODOPA/BENSERAZID [Concomitant]
     Active Substance: BENSERAZIDE\LEVODOPA
     Indication: PRODUCT USED FOR UNKNOWN INDICATION
     Dosage: 100/25 MG?0?0?0?0?1
     Route: 048
  11. CLOZAPIN [Concomitant]
     Active Substance: CLOZAPINE
     Indication: HALLUCINATION, VISUAL
     Dosage: 0?1/2?0?2
     Route: 048

REACTIONS (19)
  - Sputum retention [Unknown]
  - Dysphagia [Not Recovered/Not Resolved]
  - Nutritional condition abnormal [Unknown]
  - Hiatus hernia [Unknown]
  - Lower respiratory tract infection [Unknown]
  - Citrobacter infection [Unknown]
  - Pneumonia [Fatal]
  - Bronchitis bacterial [Unknown]
  - Productive cough [Unknown]
  - Salivary hypersecretion [Unknown]
  - Klebsiella test positive [Unknown]
  - Breath sounds abnormal [Unknown]
  - Device dislocation [Unknown]
  - Oxygen saturation decreased [Unknown]
  - Clostridium test positive [Unknown]
  - General physical health deterioration [Unknown]
  - Faeces discoloured [Unknown]
  - Hypokinesia [Unknown]
  - Incorrect route of drug administration [Recovered/Resolved]

NARRATIVE: CASE EVENT DATE: 20180704
